FAERS Safety Report 19582803 (Version 1)
Quarter: 2021Q3

REPORT INFORMATION
  Report Type: Report from Study
  Country: IT (occurrence: IT)
  Receive Date: 20210719
  Receipt Date: 20210719
  Transmission Date: 20211014
  Serious: Yes (Hospitalization)
  Sender: FDA-Public Use
  Company Number: IT-CELLTRION INC.-2020IT018177

PATIENT

DRUGS (28)
  1. TRASTUZUMAB (UNKNOWN) [Suspect]
     Active Substance: TRASTUZUMAB
     Dosage: 564 MG EVERY 3 WEEKS
     Route: 041
     Dates: start: 20170519, end: 20180510
  2. PERTUZUMAB. [Suspect]
     Active Substance: PERTUZUMAB
     Indication: BREAST CANCER
     Dosage: 840 MG, EVERY 3 WEEKS
     Route: 042
     Dates: start: 20170407, end: 20170407
  3. DESAMETASONE [Concomitant]
     Active Substance: DEXAMETHASONE
     Dosage: UNK; ONGOING = NOT CHECKED
     Dates: start: 20170407, end: 20190808
  4. OXYCODONE [Concomitant]
     Active Substance: OXYCODONE
     Dosage: UNK, ONGOING = NOT CHECKED
     Dates: start: 20190608, end: 20190913
  5. ALPRAZOLAM. [Concomitant]
     Active Substance: ALPRAZOLAM
     Dosage: UNK; ONGOING = NOT CHECKED
     Dates: start: 20190530, end: 20190913
  6. EPIRUBICIN [Suspect]
     Active Substance: EPIRUBICIN
     Indication: BREAST CANCER
     Dosage: 48 MG, 1/WEEK; MOST RECENT DOSE : 08/AUG/2019
     Route: 042
     Dates: start: 20190622
  7. TRASTUZUMAB EMTANSINE [Suspect]
     Active Substance: ADO-TRASTUZUMAB EMTANSINE
     Indication: BREAST CANCER
     Dosage: 324 MG EVERY 3 WEEKS; LAST DOSE 29AUG2018
     Route: 042
     Dates: start: 20180606
  8. MORPHINE SULFATE. [Concomitant]
     Active Substance: MORPHINE SULFATE
     Dosage: UNK; ONGOING = NOT CHECKED
     Dates: start: 20190608, end: 20190913
  9. NORVASC [Concomitant]
     Active Substance: AMLODIPINE BESYLATE
     Dosage: UNK; ONGOING = NOT CHECKED
     Dates: end: 20190913
  10. ALLOPURINOL. [Concomitant]
     Active Substance: ALLOPURINOL
     Dosage: UNK; ONGOING = NOT CHECKED
     Dates: end: 20190913
  11. EXEMESTANE. [Suspect]
     Active Substance: EXEMESTANE
     Indication: BREAST CANCER
     Dosage: 25 MG, O.D ? ONCE DAILY
     Route: 048
     Dates: start: 20171207, end: 20180604
  12. DULOXETINE. [Concomitant]
     Active Substance: DULOXETINE
     Dosage: UNK; ONGOING = NOT CHECKED
     Dates: end: 20190913
  13. RANITIDINE. [Concomitant]
     Active Substance: RANITIDINE
     Dosage: UNK; ONGOING = NOT CHECKED
     Dates: start: 20190530, end: 20190913
  14. TRASTUZUMAB (UNKNOWN) [Suspect]
     Active Substance: TRASTUZUMAB
     Indication: BREAST CANCER
     Dosage: 528 MG EVERY 3 WEEKS/TRASTUZUMAB BIOSIMILAR
     Route: 041
     Dates: start: 20190307, end: 20190509
  15. PERTUZUMAB. [Suspect]
     Active Substance: PERTUZUMAB
     Dosage: 420 MG EVERY 3 WEEKS; MOST RECENT DOSE PRIOR TO THE EVENT: 10/MAY/2018
     Route: 042
     Dates: start: 20170428
  16. TELMISARTAN. [Concomitant]
     Active Substance: TELMISARTAN
     Dosage: UNK; ONGOING = NOT CHECKED
     Dates: end: 20190913
  17. IDROCLOROTIAZIDE [Concomitant]
     Active Substance: HYDROCHLOROTHIAZIDE
     Dosage: UNK; ONGOING = NOT CHECKED
     Dates: end: 20190913
  18. LETROZOLE. [Suspect]
     Active Substance: LETROZOLE
     Indication: BREAST CANCER
     Dosage: 2.5 MG, QD
     Route: 048
     Dates: start: 20170616, end: 20171207
  19. FLUCONAZOLE. [Concomitant]
     Active Substance: FLUCONAZOLE
     Indication: PAIN
     Dosage: UNK, ONGOING = NOT CHECKED
     Dates: start: 20190902, end: 20190910
  20. TRASTUZUMAB (UNKNOWN) [Suspect]
     Active Substance: TRASTUZUMAB
     Dosage: 564 MG EVERY 3 WEEKS
     Route: 041
     Dates: start: 20170428, end: 20170519
  21. PACLITAXEL. [Suspect]
     Active Substance: PACLITAXEL
     Indication: BREAST CANCER
     Dosage: 160 MG, 1/WEEK (LAST DOSE 02JUN2017)
     Route: 042
     Dates: start: 20170407
  22. BISOPROLOL FUMARATE. [Concomitant]
     Active Substance: BISOPROLOL FUMARATE
     Indication: PAIN
     Dosage: UNK, ONGOING = NOT CHECKED
     Dates: start: 20190902, end: 20190910
  23. PARACETAMOL [Concomitant]
     Active Substance: ACETAMINOPHEN
     Dosage: UNK; ONGOING = NOT CHECKED
     Dates: start: 20170825, end: 20190913
  24. TRASTUZUMAB (UNKNOWN) [Suspect]
     Active Substance: TRASTUZUMAB
     Indication: BREAST CANCER
     Dosage: 760 MG EVERY 3 WEEKS
     Route: 041
     Dates: start: 20170407, end: 20170407
  25. TRASTUZUMAB (UNKNOWN) [Suspect]
     Active Substance: TRASTUZUMAB
     Dosage: 600 MG EVERY 3 WEEKS; MOST RECENT DOSE PRIOR TO THE EVENT: 14/FEB/2019
     Route: 041
     Dates: start: 20181120
  26. LETROZOLE. [Suspect]
     Active Substance: LETROZOLE
     Dosage: 2.5 MG, QD; MOST RECENT DOSE PRIOR TO THE EVENT: 24/MAY/2019
     Route: 048
     Dates: start: 20181109
  27. PREDNISONE. [Concomitant]
     Active Substance: PREDNISONE
     Indication: ASTHENIA
     Dosage: UNK; ONGOING = NOT CHECKED
     Dates: start: 20190530, end: 20190913
  28. ENOXAPARIN [Concomitant]
     Active Substance: ENOXAPARIN
     Dosage: UNK; ONGOING = NOT CHECKED
     Dates: start: 20190613, end: 20190913

REACTIONS (2)
  - Pain [Recovered/Resolved]
  - Off label use [Unknown]

NARRATIVE: CASE EVENT DATE: 20190902
